FAERS Safety Report 10207955 (Version 1)
Quarter: 2014Q2

REPORT INFORMATION
  Report Type: Spontaneous
  Country: US (occurrence: US)
  Receive Date: 20140530
  Receipt Date: 20140530
  Transmission Date: 20141212
  Serious: No
  Sender: FDA-Public Use
  Company Number: US-GLAXOSMITHKLINE-A1065929A

PATIENT
  Sex: Female

DRUGS (2)
  1. VENTOLIN [Suspect]
     Indication: LUNG DISORDER
     Route: 055
  2. FLOVENT [Suspect]
     Indication: LUNG DISORDER
     Route: 065

REACTIONS (2)
  - Eye operation [Unknown]
  - Lung disorder [Unknown]
